FAERS Safety Report 16819035 (Version 1)
Quarter: 2019Q3

REPORT INFORMATION
  Report Type: Spontaneous
  Country: US (occurrence: US)
  Receive Date: 20190917
  Receipt Date: 20190917
  Transmission Date: 20191005
  Serious: No
  Sender: FDA-Public Use
  Company Number: US-009507513-1909USA004517

PATIENT
  Age: 37 Year
  Sex: Male

DRUGS (8)
  1. TEMODAR [Suspect]
     Active Substance: TEMOZOLOMIDE
     Dosage: UNK UNK, CYCLICAL
     Route: 013
     Dates: start: 201001, end: 201107
  2. CARBOPLATIN. [Suspect]
     Active Substance: CARBOPLATIN
     Indication: GLIOBLASTOMA MULTIFORME
     Route: 013
  3. TEMODAR [Suspect]
     Active Substance: TEMOZOLOMIDE
     Dosage: UNK UNK, CYCLICAL
     Route: 013
     Dates: end: 201706
  4. KEYTRUDA [Suspect]
     Active Substance: PEMBROLIZUMAB
     Dosage: UNK
     Dates: start: 201710
  5. TEMODAR [Suspect]
     Active Substance: TEMOZOLOMIDE
     Indication: GLIOBLASTOMA MULTIFORME
     Dosage: UNK UNK, CYCLICAL
     Route: 013
     Dates: start: 2006
  6. TEMODAR [Suspect]
     Active Substance: TEMOZOLOMIDE
     Dosage: UNK UNK, CYCLICAL
     Route: 013
     Dates: start: 201603, end: 201604
  7. KEYTRUDA [Suspect]
     Active Substance: PEMBROLIZUMAB
     Dosage: UNK UNK, CYCLICAL (15 CYCLES)
     Dates: start: 2017, end: 201706
  8. AVASTIN [Concomitant]
     Active Substance: BEVACIZUMAB
     Dosage: UNK
     Dates: start: 2017

REACTIONS (1)
  - Adverse event [Unknown]
